FAERS Safety Report 11484913 (Version 1)
Quarter: 2015Q3

REPORT INFORMATION
  Report Type: Spontaneous
  Country: US (occurrence: US)
  Receive Date: 20150909
  Receipt Date: 20150909
  Transmission Date: 20151125
  Serious: No
  Sender: FDA-Public Use
  Company Number: US-JAZZ-2015-US-000418

PATIENT
  Sex: Female

DRUGS (11)
  1. XYREM [Suspect]
     Active Substance: SODIUM OXYBATE
     Dosage: DOSE ADJUSTMENTS
     Dates: start: 2014, end: 2014
  2. SUDAFED [Concomitant]
     Active Substance: PSEUDOEPHEDRINE HYDROCHLORIDE
     Indication: DYSTONIA
     Dosage: 60 MG, BID
  3. ZANAFLEX [Concomitant]
     Active Substance: TIZANIDINE HYDROCHLORIDE
     Indication: DYSTONIA
     Dosage: 4 MG, QD
  4. XYREM [Suspect]
     Active Substance: SODIUM OXYBATE
     Indication: HYPERSOMNIA
     Dosage: 1.5 G, BID
     Route: 048
     Dates: start: 201410, end: 2014
  5. SINEMET [Concomitant]
     Active Substance: CARBIDOPA\LEVODOPA
     Indication: DYSTONIA
     Dosage: 25/100 MG
  6. ALLEGRA [Concomitant]
     Active Substance: FEXOFENADINE HYDROCHLORIDE
     Indication: CHRONIC SINUSITIS
     Dosage: 180 MG, QD
  7. NABUMETONE. [Concomitant]
     Active Substance: NABUMETONE
     Indication: FIBROMYALGIA
     Dosage: 500 MG, BID
  8. CARBIDOPA. [Concomitant]
     Active Substance: CARBIDOPA
     Indication: DYSTONIA
     Dosage: 25 MG, Q4H
  9. RANITIDINE [Concomitant]
     Active Substance: RANITIDINE\RANITIDINE HYDROCHLORIDE
     Indication: GASTROOESOPHAGEAL REFLUX DISEASE
     Dosage: 300 MG, BID
  10. XYREM [Suspect]
     Active Substance: SODIUM OXYBATE
     Dosage: 4.5 G, BID
     Route: 048
     Dates: start: 201412
  11. VITAMIN B12 [Concomitant]
     Active Substance: CYANOCOBALAMIN
     Indication: VITAMIN B12 DEFICIENCY
     Dosage: UNK

REACTIONS (4)
  - Spinal deformity [Not Recovered/Not Resolved]
  - Inflammation [Not Recovered/Not Resolved]
  - Product use issue [Unknown]
  - Muscle contractions involuntary [Not Recovered/Not Resolved]
